FAERS Safety Report 9561429 (Version 1)
Quarter: 2013Q3

REPORT INFORMATION
  Report Type: Spontaneous
  Country: CM (occurrence: None)
  Receive Date: 20130925
  Receipt Date: 20130925
  Transmission Date: 20140515
  Serious: Yes (Hospitalization)
  Sender: FDA-Public Use
  Company Number: 2013P1019609

PATIENT
  Age: 48 Year
  Sex: Male

DRUGS (2)
  1. ALBENDAZOLE [Suspect]
     Indication: FILARIASIS LYMPHATIC
     Dosage: 1 TABLET; QD
     Dates: start: 20120812
  2. IVERMECTIN [Suspect]
     Indication: FILARIASIS LYMPHATIC
     Dosage: 4 TABLETS; QD; PO
     Route: 048
     Dates: start: 20120812

REACTIONS (5)
  - Arthralgia [None]
  - Headache [None]
  - Diarrhoea [None]
  - Decreased appetite [None]
  - Asthenia [None]
